FAERS Safety Report 24828193 (Version 1)
Quarter: 2025Q1

REPORT INFORMATION
  Report Type: Spontaneous
  Country: SK (occurrence: SK)
  Receive Date: 20250109
  Receipt Date: 20250109
  Transmission Date: 20250409
  Serious: Yes (Other)
  Sender: B BRAUN
  Company Number: SK-B.Braun Medical Inc.-2168757

PATIENT
  Age: 65 Year
  Sex: Male

DRUGS (1)
  1. RINGERS SOLUTION [Suspect]
     Active Substance: CALCIUM CHLORIDE\POTASSIUM CHLORIDE\SODIUM CHLORIDE
     Dates: start: 20241029, end: 20241125

REACTIONS (3)
  - Anterior chamber fibrin [Recovered/Resolved]
  - Eye operation [Recovered/Resolved]
  - Vitreous fibrin [Recovered/Resolved]
